FAERS Safety Report 8970934 (Version 1)
Quarter: 2012Q4

REPORT INFORMATION
  Report Type: 
  Country: SE (occurrence: SE)
  Receive Date: 20121218
  Receipt Date: 20121218
  Transmission Date: 20130627
  Serious: Yes (Hospitalization, Other)
  Sender: FDA-Public Use
  Company Number: SE-PFIZER INC-2012317478

PATIENT
  Age: 30 Year
  Sex: Male
  Weight: 73 kg

DRUGS (3)
  1. GENOTROPIN [Suspect]
     Dosage: 0.8 mg, 1x/day,7 injections/week
     Route: 058
     Dates: start: 20051125
  2. HYDROCORTISONE [Concomitant]
     Indication: ADRENAL INSUFFICIENCY
     Dosage: UNK
     Dates: start: 20090112
  3. SOLU-CORTEF [Concomitant]
     Indication: ADRENAL INSUFFICIENCY
     Dosage: UNK
     Dates: start: 20090112

REACTIONS (2)
  - Pneumonia [Unknown]
  - Bronchitis [Unknown]
